FAERS Safety Report 5072978-7 (Version None)
Quarter: 2006Q3

REPORT INFORMATION
  Report Type: 
  Country: None (occurrence: None)
  Receive Date: 20060802
  Receipt Date: 20060721
  Transmission Date: 20061208
  Serious: Yes (Hospitalization)
  Sender: FDA-Public Use
  Company Number: 2006078704

PATIENT
  Sex: Female

DRUGS (9)
  1. LYRICA [Suspect]
     Indication: RESTLESSNESS
     Dosage: 300 MG (75 MG, 4 IN 1 D), ORAL
     Route: 048
  2. MST (MORPHINE SULFATE) [Concomitant]
  3. IRBESARTAN [Concomitant]
  4. NEXIUM [Concomitant]
  5. LEVOTHYROXINE SODIUM [Concomitant]
  6. ESIDRIX [Concomitant]
  7. DIAZEPAM [Concomitant]
  8. TAVOR (LORAZEPAM) [Concomitant]
  9. PROTHIPENDYL (PROTHIPENDYL) [Concomitant]

REACTIONS (1)
  - CIRCULATORY COLLAPSE [None]
